FAERS Safety Report 9859074 (Version 2)
Quarter: 2014Q3

REPORT INFORMATION
  Report Type: Spontaneous
  Country: US (occurrence: US)
  Receive Date: 20140131
  Receipt Date: 20140718
  Transmission Date: 20150326
  Serious: Yes (Hospitalization, Other)
  Sender: FDA-Public Use
  Company Number: US-009507513-1401USA014142

PATIENT
  Sex: Female

DRUGS (2)
  1. NUVARING [Suspect]
     Active Substance: ETHINYL ESTRADIOL\ETONOGESTREL
     Dosage: UNK
     Route: 067
     Dates: start: 20110107, end: 201104
  2. NUVARING [Suspect]
     Active Substance: ETHINYL ESTRADIOL\ETONOGESTREL
     Indication: CONTRACEPTION
     Dosage: UNK
     Route: 067
     Dates: start: 20071102, end: 20080428

REACTIONS (9)
  - Vomiting [Unknown]
  - Cholecystectomy [Unknown]
  - Deep vein thrombosis [Unknown]
  - Constipation [Unknown]
  - Hypothyroidism [Unknown]
  - Pelvic venous thrombosis [Unknown]
  - Maternal exposure before pregnancy [Recovered/Resolved]
  - Polycystic ovaries [Unknown]
  - Nausea [Unknown]

NARRATIVE: CASE EVENT DATE: 2010
